FAERS Safety Report 7754338-0 (Version None)
Quarter: 2011Q3

REPORT INFORMATION
  Report Type: 
  Country: None (occurrence: None)
  Receive Date: 20110915
  Receipt Date: 20110907
  Transmission Date: 20111222
  Serious: Yes (Other)
  Sender: FDA-Public Use
  Company Number: PHHY2011ES79962

PATIENT
  Age: 45 Year
  Sex: Female

DRUGS (3)
  1. PAROXETINE HCL [Suspect]
     Indication: DEPRESSION
     Dosage: UNK UKN, UNK
  2. DOXYLAMINE SUCCINATE [Suspect]
     Indication: DEPRESSION
     Dosage: UNK UKN, UNK
  3. OXCARBAZEPINE [Suspect]
     Indication: DEPRESSION
     Dosage: UNK UKN, UNK

REACTIONS (19)
  - FOLLICULAR MUCINOSIS [None]
  - SKIN PLAQUE [None]
  - PRURITUS [None]
  - HEPATIC ENZYME INCREASED [None]
  - ERYTHEMA [None]
  - NAUSEA [None]
  - DRUG RASH WITH EOSINOPHILIA AND SYSTEMIC SYMPTOMS [None]
  - PYREXIA [None]
  - RASH [None]
  - EOSINOPHILIA [None]
  - DRUG ERUPTION [None]
  - RASH ERYTHEMATOUS [None]
  - LIP OEDEMA [None]
  - MYCOSIS FUNGOIDES [None]
  - ASTHENIA [None]
  - LYMPHADENOPATHY [None]
  - LYMPHOCYTIC INFILTRATION [None]
  - HYPONATRAEMIA [None]
  - MALAISE [None]
